FAERS Safety Report 4692151-1 (Version None)
Quarter: 2005Q2

REPORT INFORMATION
  Report Type: 
  Country: None (occurrence: None)
  Receive Date: 20050614
  Receipt Date: 20050601
  Transmission Date: 20051028
  Serious: Yes (Death, Life-Threatening, Hospitalization)
  Sender: FDA-Public Use
  Company Number: 009

PATIENT
  Sex: Female

DRUGS (13)
  1. FAZACLO 100 MG ALAMO PHARMACEUTICALS [Suspect]
     Indication: SCHIZOPHRENIA
     Dosage: 400 MG PO DAILY
     Route: 048
     Dates: start: 20050201, end: 20050501
  2. CHEMOTHERAPY [Concomitant]
  3. LEVOTHYROXINE [Concomitant]
  4. ARANESP [Concomitant]
  5. SENOKOT [Concomitant]
  6. MGOXIDE [Concomitant]
  7. MS CONTIN [Concomitant]
  8. PREVACID [Concomitant]
  9. DEPAKOTE [Concomitant]
  10. LACTULOSE [Concomitant]
  11. ATIVAN [Concomitant]
  12. AMBIEN [Concomitant]
  13. NEURONTIN [Concomitant]

REACTIONS (1)
  - CATHETER SITE INFECTION [None]
